FAERS Safety Report 14967279 (Version 1)
Quarter: 2018Q2

REPORT INFORMATION
  Report Type: Report from Study
  Country: JP (occurrence: JP)
  Receive Date: 20180604
  Receipt Date: 20180604
  Transmission Date: 20180711
  Serious: Yes (Death, Life-Threatening, Other)
  Sender: FDA-Public Use
  Company Number: JP-CHEPLA-C20170262_A

PATIENT
  Age: 58 Year
  Sex: Female

DRUGS (15)
  1. CYTARABINE. [Suspect]
     Active Substance: CYTARABINE
     Indication: LEUKAEMIA RECURRENT
     Dosage: 100 MG/M2 FOR 5 DAYS (AFTER INITIAL DIAGNOSIS)
  2. ARSENIC TRIOXIDE (ATO) [Suspect]
     Active Substance: ARSENIC TRIOXIDE
     Indication: LEUKAEMIA RECURRENT
     Dosage: TREATMENT AND MAINTENANCE AFTER 4TH RELAPSE, MAINTENANCE AFTER 5TH RELAPSE
  3. MITOXANTRONE [Suspect]
     Active Substance: MITOXANTRONE HYDROCHLORIDE
     Indication: LEUKAEMIA RECURRENT
     Dosage: MEC REGIMEN (INCL MITOXANTRONE 6 MG/M2 ON DAYS 1-4) TREATMENT FOR 2ND, 3RD, 4TH AND 5TH RELAPSE
  4. ARSENIC TRIOXIDE (ATO) [Suspect]
     Active Substance: ARSENIC TRIOXIDE
     Indication: LEUKAEMIA RECURRENT
     Dosage: 0.15 MG/KG/DAY IN 5 DAYS A WEEK FOR 5 WEEKS (2 CONSOLIDATION COURSES AFTER 1ST RELAPSE)
  5. GEMTUZUMAB OZOGAMICIN (GO) [Suspect]
     Active Substance: GEMTUZUMAB OZOGAMICIN
     Indication: LEUKAEMIA RECURRENT
     Dosage: GEMTUZUMAB OZOGAMICIN (GO 3 MG/M2), TREATMENT OF 2ND, 3RD AND 4TH RELAPSE
  6. CYTARABINE. [Suspect]
     Active Substance: CYTARABINE
     Indication: LEUKAEMIA RECURRENT
     Dosage: TIT REGIMEN (INCLUDING CYTARABINE 40 MG) 10 TIMES AFTER 1ST CNS RELAPSE
     Route: 037
  7. ARSENIC TRIOXIDE (ATO) [Suspect]
     Active Substance: ARSENIC TRIOXIDE
     Indication: LEUKAEMIA RECURRENT
     Dosage: 0.15 MG/KG/DAY EVERY DAY UNTIL SECOND MCR
     Route: 042
  8. TAMIBAROTENE (AM80) [Suspect]
     Active Substance: TAMIBAROTENE
     Indication: LEUKAEMIA RECURRENT
     Dosage: MAINTENANCE AFTER 3RD RELAPSE
  9. ALL-TRANS RETINOIC ACID (ATRA) [Suspect]
     Active Substance: TRETINOIN
     Indication: ACUTE PROMYELOCYTIC LEUKAEMIA
     Dosage: ATRA 45 MG/M^2 (AFTER INITIAL DIAGNOSIS, INDUCTION + MAINTENANCE)
  10. IDARUBICIN (IDA) [Suspect]
     Active Substance: IDARUBICIN
     Indication: ACUTE PROMYELOCYTIC LEUKAEMIA
     Dosage: IDARUBICIN (IDA) 12 MG/M2 FOR 2 DAYS (AFTER INITIAL DIAGNOSIS)
  11. CYTARABINE. [Suspect]
     Active Substance: CYTARABINE
     Indication: LEUKAEMIA RECURRENT
     Dosage: MEC REGIMEN (INCL CYTARABINE 100MG/M2 ON DAYS 1-5) TREATMENT FOR 2ND, 3RD, 4TH AND 5TH RELAPSE
  12. PREDNISOLONE. [Suspect]
     Active Substance: PREDNISOLONE
     Indication: LEUKAEMIA RECURRENT
     Dosage: TIT REGIMEN (INCLUDING PREDNISOLONE 10 MG) 10 TIMES AFTER 1ST CNS RELAPSE
     Route: 037
  13. CYTARABINE. [Suspect]
     Active Substance: CYTARABINE
     Indication: LEUKAEMIA RECURRENT
     Dosage: TWO COURSES OF HIGH-DOSE CYTARABINE: 1500 MG/M2 FOR 5 DAYS FOR 5TH RELAPSE/2ND CNS RELAPSE
  14. ETOPOSIDE. [Suspect]
     Active Substance: ETOPOSIDE
     Indication: LEUKAEMIA RECURRENT
     Dosage: MEC REGIMEN (INCL ETOPOSIDE 80 MG/M2 ON DAYS 1-5) TREATMENT FOR 2ND, 3RD, 4TH AND 5TH RELAPSE
  15. METHOTREXATE. [Suspect]
     Active Substance: METHOTREXATE
     Indication: LEUKAEMIA RECURRENT
     Dosage: TIT REGIMEN (INCLUDING METHOTREXATE 15 MG) 10 TIMES AFTER 1ST CNS RELAPSE
     Route: 037

REACTIONS (6)
  - Visual impairment [Unknown]
  - Stem cell transplant [None]
  - Acute promyelocytic leukaemia differentiation syndrome [Unknown]
  - Leukaemia recurrent [Fatal]
  - Central nervous system leukaemia [Fatal]
  - Acute promyelocytic leukaemia [None]
